FAERS Safety Report 23937556 (Version 3)
Quarter: 2024Q3

REPORT INFORMATION
  Report Type: Spontaneous
  Country: BR (occurrence: BR)
  Receive Date: 20240604
  Receipt Date: 20240705
  Transmission Date: 20241016
  Serious: Yes (Other)
  Sender: BIOVITRUM
  Company Number: BR-AstraZeneca-2024-211099

PATIENT
  Age: 319 Day
  Sex: Male
  Weight: 9 kg

DRUGS (4)
  1. SYNAGIS [Suspect]
     Active Substance: PALIVIZUMAB
     Indication: Premature baby
     Dosage: EVERY FOUR WEEKS
     Route: 030
     Dates: start: 202307
  2. SYNAGIS [Suspect]
     Active Substance: PALIVIZUMAB
     Dosage: EVERY FOUR WEEKS
     Route: 030
     Dates: start: 20240422, end: 20240520
  3. IRON [Concomitant]
     Active Substance: IRON
     Indication: Product used for unknown indication
  4. OMEGA 3 [Concomitant]
     Active Substance: CAPSAICIN
     Indication: Product used for unknown indication

REACTIONS (5)
  - Bronchiolitis [Unknown]
  - Respiratory syncytial virus bronchitis [Unknown]
  - Bacterial test positive [Unknown]
  - Pyrexia [Recovered/Resolved]
  - Off label use [Unknown]

NARRATIVE: CASE EVENT DATE: 20240426
